FAERS Safety Report 17207294 (Version 1)
Quarter: 2019Q4

REPORT INFORMATION
  Report Type: Spontaneous
  Country: SE (occurrence: SE)
  Receive Date: 20191227
  Receipt Date: 20191227
  Transmission Date: 20200122
  Serious: Yes (Hospitalization)
  Sender: FDA-Public Use
  Company Number: SE-TEVA-2019-SE-1158574

PATIENT
  Age: 28 Year
  Sex: Female

DRUGS (4)
  1. NITRAZEPAM [Suspect]
     Active Substance: NITRAZEPAM
     Dosage: 100 MG
     Route: 048
     Dates: start: 20180529, end: 20180529
  2. OXAZEPAM. [Suspect]
     Active Substance: OXAZEPAM
     Route: 048
     Dates: start: 20180529, end: 20180529
  3. PROPAVAN [Suspect]
     Active Substance: PROPIOMAZINE
     Route: 048
     Dates: start: 20180529, end: 20180529
  4. IMOVANE [Suspect]
     Active Substance: ZOPICLONE
     Route: 048
     Dates: start: 20180529, end: 20180529

REACTIONS (3)
  - Fatigue [Unknown]
  - Intentional self-injury [Unknown]
  - Intentional overdose [Unknown]

NARRATIVE: CASE EVENT DATE: 20180529
